FAERS Safety Report 16954081 (Version 1)
Quarter: 2019Q4

REPORT INFORMATION
  Report Type: Spontaneous
  Country: US (occurrence: US)
  Receive Date: 20191023
  Receipt Date: 20191023
  Transmission Date: 20200122
  Serious: No
  Sender: FDA-Public Use
  Company Number: US-TARO-2018TAR00833

PATIENT
  Sex: Male

DRUGS (1)
  1. ALCLOMETASONE DIPROPIONATE CREAM 0.05% [Suspect]
     Active Substance: ALCLOMETASONE DIPROPIONATE
     Indication: SKIN EXFOLIATION
     Dosage: UNK, 3-4 TIMES DAILY
     Route: 061

REACTIONS (2)
  - Dizziness [Recovered/Resolved]
  - Off label use [Not Recovered/Not Resolved]
